FAERS Safety Report 4882928-1 (Version None)
Quarter: 2006Q1

REPORT INFORMATION
  Report Type: 
  Country: None (occurrence: None)
  Receive Date: 20060113
  Receipt Date: 20060103
  Transmission Date: 20060701
  Serious: Yes (Hospitalization, Disabling)
  Sender: FDA-Public Use
  Company Number: GBS050717934

PATIENT
  Age: 43 Year
  Sex: Female
  Weight: 45 kg

DRUGS (3)
  1. ZYPREXA [Suspect]
     Indication: BIPOLAR I DISORDER
     Dosage: 10 MG, ORAL
     Route: 048
     Dates: start: 20040315, end: 20050813
  2. EPILIM (VALPROATE SODIUM) [Concomitant]
  3. ZOPICLONE (ZOPICLONE) [Concomitant]

REACTIONS (5)
  - BLOOD PRESSURE DIASTOLIC INCREASED [None]
  - CEREBRAL INFARCTION [None]
  - FACIAL PALSY [None]
  - LOWER RESPIRATORY TRACT INFECTION [None]
  - THROMBOTIC STROKE [None]
